FAERS Safety Report 7754541-X (Version None)
Quarter: 2011Q3

REPORT INFORMATION
  Report Type: 
  Country: None (occurrence: None)
  Receive Date: 20110915
  Receipt Date: 20110906
  Transmission Date: 20111222
  Serious: Yes (Other)
  Sender: FDA-Public Use
  Company Number: GB-BAXTER-2011BH022616

PATIENT
  Age: 14 Year
  Sex: Female
  Weight: 57 kg

DRUGS (6)
  1. SEPTRA [Concomitant]
     Indication: ACUTE LYMPHOCYTIC LEUKAEMIA
     Route: 048
     Dates: start: 20100101
  2. GAMMAGARD LIQUID [Suspect]
     Indication: OFF LABEL USE
     Route: 065
     Dates: start: 20110412, end: 20110705
  3. MERCAPTOPURINE [Concomitant]
     Indication: ACUTE LYMPHOCYTIC LEUKAEMIA
     Route: 048
     Dates: start: 20100301
  4. METHOTREXATE [Concomitant]
     Indication: ACUTE LYMPHOCYTIC LEUKAEMIA
     Route: 048
     Dates: start: 20100301
  5. GAMMAGARD LIQUID [Suspect]
     Indication: ANAPHYLACTIC REACTION
     Route: 065
     Dates: start: 20110412, end: 20110705
  6. METHOTREXATE [Concomitant]
     Route: 037
     Dates: start: 20100301

REACTIONS (7)
  - MYALGIA [None]
  - MALAISE [None]
  - ANAPHYLACTIC REACTION [None]
  - HEADACHE [None]
  - PALLOR [None]
  - LIVEDO RETICULARIS [None]
  - UNEVALUABLE EVENT [None]
